FAERS Safety Report 5628052-1 (Version None)
Quarter: 2008Q1

REPORT INFORMATION
  Report Type: 
  Country: None (occurrence: None)
  Receive Date: 20080215
  Receipt Date: 20080205
  Transmission Date: 20080703
  Serious: Yes (Hospitalization)
  Sender: FDA-Public Use
  Company Number: JP-AMGEN-US264796

PATIENT
  Age: 67 Year
  Sex: Female

DRUGS (5)
  1. ENBREL [Suspect]
     Indication: RHEUMATOID ARTHRITIS
     Dosage: 25 MG UNSPECIFIED FREQUENCY
     Route: 058
     Dates: start: 20071208, end: 20071222
  2. GASTER [Concomitant]
     Dosage: UNSPECIFIED
     Route: 048
  3. FOLIAMIN [Concomitant]
     Dosage: UNSPECIFIED
     Route: 048
  4. RISUMIC [Concomitant]
     Dosage: UNSPECIFIED
     Route: 048
  5. TICLOPIDINE HCL [Concomitant]
     Dosage: UNSPECIFIED
     Route: 048

REACTIONS (2)
  - C-REACTIVE PROTEIN INCREASED [None]
  - LIVER FUNCTION TEST ABNORMAL [None]
